FAERS Safety Report 5509107-9 (Version None)
Quarter: 2007Q4

REPORT INFORMATION
  Report Type: 
  Country: None (occurrence: None)
  Receive Date: 20071107
  Receipt Date: 20071101
  Transmission Date: 20080405
  Serious: Yes (Death)
  Sender: FDA-Public Use
  Company Number: US-ASTRAZENECA-2007UW25742

PATIENT
  Age: 46 Year
  Sex: Male

DRUGS (3)
  1. SEROQUEL [Suspect]
     Dosage: SEROQUEL 700MG/DAY SINCE 4/07
     Route: 048
     Dates: start: 20070401
  2. RISPERDAL CONSTA [Suspect]
     Dosage: 50MG IM Q2WKS X 2 YRS
     Route: 030
  3. DIAZEPAM [Concomitant]

REACTIONS (2)
  - ARTERIOSCLEROSIS [None]
  - MYOCARDIAL INFARCTION [None]
